FAERS Safety Report 23198086 (Version 3)
Quarter: 2023Q4

REPORT INFORMATION
  Report Type: Report from Study
  Country: NZ (occurrence: NZ)
  Receive Date: 20231117
  Receipt Date: 20231205
  Transmission Date: 20240110
  Serious: Yes (Other)
  Sender: FDA-Public Use
  Company Number: NZ-002147023-NVSC2023NZ240298

PATIENT
  Age: 57 Year
  Sex: Female
  Weight: 82.8 kg

DRUGS (13)
  1. LEQVIO [Suspect]
     Active Substance: INCLISIRAN SODIUM
     Indication: Cardiovascular event prophylaxis
     Dosage: UNK
     Route: 058
     Dates: start: 20220818, end: 20231102
  2. ETANERCEPT [Concomitant]
     Active Substance: ETANERCEPT
     Indication: Arthropathy
     Dosage: UNK
     Route: 065
     Dates: start: 20190207
  3. ASPIRIN [Concomitant]
     Active Substance: ASPIRIN
     Indication: Myocardial ischaemia
     Dosage: UNK
     Route: 065
     Dates: start: 20201218
  4. ATORVASTATIN [Concomitant]
     Active Substance: ATORVASTATIN
     Indication: Cardiovascular event prophylaxis
     Dosage: UNK
     Route: 065
     Dates: start: 20201218
  5. METOPROLOL [Concomitant]
     Active Substance: METOPROLOL
     Indication: Myocardial ischaemia
     Dosage: UNK
     Route: 065
     Dates: start: 20210105
  6. CANDESARTAN [Concomitant]
     Active Substance: CANDESARTAN
     Indication: Myocardial ischaemia
     Dosage: UNK
     Route: 065
     Dates: start: 20210318
  7. CALCIUM CARBONATE\SODIUM ALGINATE\SODIUM BICARBONATE [Concomitant]
     Active Substance: CALCIUM CARBONATE\SODIUM ALGINATE\SODIUM BICARBONATE
     Indication: Irritable bowel syndrome
     Dosage: UNK
     Route: 065
     Dates: start: 20221110
  8. OMEPRAZOLE [Concomitant]
     Active Substance: OMEPRAZOLE
     Indication: Irritable bowel syndrome
     Dosage: UNK
     Route: 065
     Dates: start: 20230131
  9. LORAZEPAM [Concomitant]
     Active Substance: LORAZEPAM
     Indication: Anxiety
     Dosage: UNK
     Route: 065
     Dates: start: 20230321
  10. MORPHINE [Concomitant]
     Active Substance: MORPHINE
     Indication: Arthropathy
     Dosage: UNK
     Route: 065
     Dates: start: 20230503
  11. DULAGLUTIDE [Concomitant]
     Active Substance: DULAGLUTIDE
     Indication: Obesity
     Dosage: UNK
     Route: 065
     Dates: start: 20230524
  12. NITROGLYCERIN [Concomitant]
     Active Substance: NITROGLYCERIN
     Indication: Myocardial ischaemia
     Dosage: UNK
     Route: 065
     Dates: start: 20230821
  13. ZOPICLONE [Concomitant]
     Active Substance: ZOPICLONE
     Indication: Insomnia
     Dosage: UNK
     Route: 065
     Dates: start: 20231005

REACTIONS (1)
  - Urticaria [Recovering/Resolving]

NARRATIVE: CASE EVENT DATE: 20231105
